FAERS Safety Report 4480824-5 (Version None)
Quarter: 2004Q4

REPORT INFORMATION
  Report Type: 
  Country: None (occurrence: None)
  Receive Date: 20041020
  Receipt Date: 20041020
  Transmission Date: 20050328
  Serious: Yes (Hospitalization)
  Sender: FDA-Public Use
  Company Number: None

PATIENT
  Age: 41 Year
  Sex: Male
  Weight: 124.7 kg

DRUGS (12)
  1. COUMADIN [Suspect]
     Indication: DEEP VEIN THROMBOSIS
     Dosage: 4 MG PO DAILY
     Route: 048
  2. TYLENOL [Concomitant]
  3. FUROSEMIDE [Concomitant]
  4. POTASSIUM [Concomitant]
  5. MS CONTIN [Concomitant]
  6. PRILOSEC [Concomitant]
  7. SORBITOL [Concomitant]
  8. TOPAMAX [Concomitant]
  9. QUINIDINE HCL [Concomitant]
  10. SOMA [Concomitant]
  11. EFFEXOR [Concomitant]
  12. MS CONTIN [Concomitant]

REACTIONS (1)
  - HAEMATURIA [None]
